FAERS Safety Report 6061643-5 (Version None)
Quarter: 2009Q1

REPORT INFORMATION
  Report Type: 
  Country: None (occurrence: None)
  Receive Date: 20090202
  Receipt Date: 20090127
  Transmission Date: 20090719
  Serious: Yes (Other)
  Sender: FDA-Public Use
  Company Number: A0765501A

PATIENT
  Age: 65 Year
  Sex: Male

DRUGS (4)
  1. ABACAVIR SULFATE/LAMIVUDINE [Suspect]
     Indication: DRUG USE FOR UNKNOWN INDICATION
     Route: 065
  2. INSULIN [Concomitant]
     Route: 065
  3. KALETRA [Concomitant]
     Route: 065
  4. TRUVADA [Concomitant]
     Route: 065

REACTIONS (1)
  - TYPE 1 DIABETES MELLITUS [None]
